FAERS Safety Report 10801284 (Version 2)
Quarter: 2015Q1

REPORT INFORMATION
  Report Type: Spontaneous
  Country: US (occurrence: US)
  Receive Date: 20150217
  Receipt Date: 20150327
  Transmission Date: 20150721
  Serious: Yes (Hospitalization)
  Sender: FDA-Public Use
  Company Number: US-AMGEN-USASP2015013399

PATIENT
  Age: 79 Year
  Sex: Female

DRUGS (2)
  1. INSULIN [Concomitant]
     Active Substance: INSULIN NOS
     Dosage: UNK
  2. EPOGEN [Suspect]
     Active Substance: ERYTHROPOIETIN
     Indication: HAEMOGLOBIN ABNORMAL
     Dosage: 10000 UNIT, ONCE WEEKLY
     Route: 058
     Dates: start: 201412

REACTIONS (5)
  - Lower limb fracture [Recovering/Resolving]
  - Visual impairment [Unknown]
  - Fall [Unknown]
  - Haemoglobin decreased [Unknown]
  - Gait disturbance [Unknown]
